FAERS Safety Report 5717868-9 (Version None)
Quarter: 2008Q2

REPORT INFORMATION
  Report Type: 
  Country: None (occurrence: None)
  Receive Date: 20080425
  Receipt Date: 20071218
  Transmission Date: 20081010
  Serious: No
  Sender: FDA-Public Use
  Company Number: US-ABBOTT-07P-163-0431273-00

PATIENT
  Sex: Female
  Weight: 82.628 kg

DRUGS (1)
  1. ERYTHROMYCIN [Suspect]
     Indication: SINUSITIS
     Route: 048
     Dates: start: 20050101, end: 20050101

REACTIONS (1)
  - STOMACH DISCOMFORT [None]
